FAERS Safety Report 5098066-1 (Version None)
Quarter: 2006Q3

REPORT INFORMATION
  Report Type: 
  Country: None (occurrence: None)
  Receive Date: 20060906
  Receipt Date: 20060404
  Transmission Date: 20061208
  Serious: No
  Sender: FDA-Public Use
  Company Number: US-GLAXOSMITHKLINE-A0600333A

PATIENT
  Age: 60 Year
  Sex: Female
  Weight: 85.9 kg

DRUGS (8)
  1. REQUIP [Suspect]
     Indication: RESTLESS LEGS SYNDROME
     Dosage: 2MG UNKNOWN
     Route: 048
  2. TOPROL-XL [Concomitant]
  3. PLAVIX [Concomitant]
  4. AMBIEN [Concomitant]
  5. LOPID [Concomitant]
  6. ZOCOR [Concomitant]
  7. XENICAL [Concomitant]
  8. ZESTORETIC [Concomitant]

REACTIONS (2)
  - FOOD CRAVING [None]
  - OBSESSIVE-COMPULSIVE DISORDER [None]
